FAERS Safety Report 14744107 (Version 1)
Quarter: 2018Q2

REPORT INFORMATION
  Report Type: Spontaneous
  Country: US (occurrence: US)
  Receive Date: 20180411
  Receipt Date: 20180411
  Transmission Date: 20180711
  Serious: Yes (Other)
  Sender: FDA-Public Use
  Company Number: US-TESARO INC.-TS50-00226-2016USA

PATIENT
  Age: 49 Year
  Sex: Male

DRUGS (2)
  1. ROLAPITANT HYDROCHLORIDE [Suspect]
     Active Substance: ROLAPITANT
     Indication: NAUSEA
     Route: 048
     Dates: start: 20161101
  2. ROLAPITANT HYDROCHLORIDE [Suspect]
     Active Substance: ROLAPITANT
     Indication: VOMITING

REACTIONS (22)
  - Sensitivity of teeth [Unknown]
  - Oral pain [Unknown]
  - Blood sodium decreased [Unknown]
  - Pruritus [Unknown]
  - Dysgeusia [Unknown]
  - Blood testosterone decreased [Unknown]
  - Fatigue [Unknown]
  - Pain in extremity [Unknown]
  - Lymphocyte percentage decreased [Unknown]
  - Headache [Unknown]
  - Anxiety [Unknown]
  - Back pain [Unknown]
  - Stomatitis [Unknown]
  - Dyspepsia [Unknown]
  - Blood glucose increased [Unknown]
  - Carbon dioxide increased [Unknown]
  - Embolic stroke [Unknown]
  - Nausea [Unknown]
  - Neck pain [Unknown]
  - Decreased appetite [Unknown]
  - Cortisol decreased [Unknown]
  - Neutrophil count increased [Unknown]

NARRATIVE: CASE EVENT DATE: 20161106
